FAERS Safety Report 7213061-1 (Version None)
Quarter: 2011Q1

REPORT INFORMATION
  Report Type: 
  Country: None (occurrence: None)
  Receive Date: 20110106
  Receipt Date: 20101230
  Transmission Date: 20110831
  Serious: Yes (Hospitalization)
  Sender: FDA-Public Use
  Company Number: B0692182A

PATIENT
  Age: 16 Year
  Sex: Female

DRUGS (1)
  1. HEPTODIN [Suspect]
     Indication: HEPATITIS B
     Dosage: .1G PER DAY
     Route: 048
     Dates: start: 20080101

REACTIONS (5)
  - SCHIZOPHRENIA [None]
  - ABNORMAL BEHAVIOUR [None]
  - SPEECH DISORDER [None]
  - IMPAIRED SELF-CARE [None]
  - FEELING ABNORMAL [None]
